FAERS Safety Report 8802873 (Version 1)
Quarter: 2012Q4

REPORT INFORMATION
  Report Type: 
  Country: US (occurrence: US)
  Receive Date: 20120921
  Receipt Date: 20120921
  Transmission Date: 20130627
  Serious: Yes (Other)
  Sender: FDA-Public Use
  Company Number: US-TEVA-359380USA

PATIENT
  Age: 38 Year
  Sex: Female

DRUGS (1)
  1. COPAXONE [Suspect]

REACTIONS (5)
  - Hypersensitivity [Unknown]
  - Loss of consciousness [Unknown]
  - Heart rate increased [Unknown]
  - Myalgia [Unknown]
  - Dyspnoea [Unknown]
